FAERS Safety Report 8079950-3 (Version None)
Quarter: 2012Q1

REPORT INFORMATION
  Report Type: 
  Country: None (occurrence: None)
  Receive Date: 20120128
  Receipt Date: 20110723
  Transmission Date: 20120608
  Serious: No
  Sender: FDA-Public Use
  Company Number: US-ABBOTT-11P-163-0841306-00

PATIENT
  Age: 39 Year
  Sex: Male

DRUGS (3)
  1. QUESTRAN [Concomitant]
     Indication: CROHN'S DISEASE
  2. LOVAZA [Concomitant]
     Indication: BLOOD CHOLESTEROL ABNORMAL
  3. HUMIRA [Suspect]
     Indication: CROHN'S DISEASE
     Dates: start: 20110310

REACTIONS (1)
  - HEADACHE [None]
